FAERS Safety Report 4846596-7 (Version None)
Quarter: 2005Q4

REPORT INFORMATION
  Report Type: 
  Country: None (occurrence: None)
  Receive Date: 20051202
  Receipt Date: 20051117
  Transmission Date: 20060501
  Serious: Yes (Other)
  Sender: FDA-Public Use
  Company Number: CIP05002694

PATIENT
  Age: 43 Year
  Sex: Female
  Weight: 58 kg

DRUGS (2)
  1. DANTRIUM [Suspect]
     Indication: MUSCLE SPASTICITY
     Dosage: SEE IMAGE, ORAL
     Route: 048
  2. DYSPORT (BOTULINUM TOXIN TYPE A) [Concomitant]

REACTIONS (3)
  - ATONIC URINARY BLADDER [None]
  - NEUROLYSIS [None]
  - UROSEPSIS [None]
